FAERS Safety Report 6958557-2 (Version None)
Quarter: 2010Q3

REPORT INFORMATION
  Report Type: 
  Country: None (occurrence: None)
  Receive Date: 20100830
  Receipt Date: 20100830
  Transmission Date: 20110219
  Serious: Yes (Disabling)
  Sender: FDA-Public Use
  Company Number: None

PATIENT
  Age: 50 Year
  Sex: Female
  Weight: 68.0396 kg

DRUGS (2)
  1. CHLORPROMAZINE [Suspect]
     Indication: AGITATION
     Dosage: 100MG 1X PO, 1 DOSE
     Route: 048
     Dates: start: 20100420, end: 20100420
  2. CHLORPROMAZINE [Suspect]
     Indication: SCHIZOPHRENIA
     Dosage: 100MG 1X PO, 1 DOSE
     Route: 048
     Dates: start: 20100420, end: 20100420

REACTIONS (2)
  - PROTRUSION TONGUE [None]
  - TREMOR [None]
